FAERS Safety Report 5791220-2 (Version None)
Quarter: 2008Q2

REPORT INFORMATION
  Report Type: 
  Country: None (occurrence: None)
  Receive Date: 20080626
  Receipt Date: 20080229
  Transmission Date: 20081010
  Serious: No
  Sender: FDA-Public Use
  Company Number: A0712548A

PATIENT
  Sex: Female

DRUGS (2)
  1. ALLI [Suspect]
     Route: 048
  2. MULTIPLE VITAMIN [Concomitant]

REACTIONS (8)
  - DIARRHOEA [None]
  - HYPERSENSITIVITY [None]
  - ILL-DEFINED DISORDER [None]
  - MALAISE [None]
  - RASH [None]
  - RETCHING [None]
  - URTICARIA [None]
  - VOMITING [None]
